FAERS Safety Report 23137997 (Version 3)
Quarter: 2024Q1

REPORT INFORMATION
  Report Type: Report from Study
  Country: CA (occurrence: CA)
  Receive Date: 20231102
  Receipt Date: 20240206
  Transmission Date: 20240409
  Serious: Yes (Other)
  Sender: FDA-Public Use
  Company Number: CA-SAMSUNG BIOEPIS-SB-2023-28771

PATIENT
  Age: 47 Year
  Sex: Female
  Weight: 48 kg

DRUGS (14)
  1. RENFLEXIS [Suspect]
     Active Substance: INFLIXIMAB-ABDA
     Indication: Behcet^s syndrome
     Dosage: 3 VIALS
     Route: 042
     Dates: start: 20221215
  2. RABEPRAZOLE [Concomitant]
     Active Substance: RABEPRAZOLE
     Indication: Product used for unknown indication
     Dosage: AM MEDICATION, 6 PM MEDICATION
     Route: 065
     Dates: start: 20140913
  3. TRAMADOL HYDROCHLORIDE [Concomitant]
     Active Substance: TRAMADOL HYDROCHLORIDE
     Indication: Product used for unknown indication
     Dosage: AM MEDICATION, 6 PM MEDICATION
     Route: 065
     Dates: start: 20140913
  4. PREDNISONE [Concomitant]
     Active Substance: PREDNISONE
     Indication: Product used for unknown indication
     Dosage: AM MEDICATION
     Route: 065
     Dates: start: 20140913
  5. PROPANOL (PROPRANOLOL HYDROCHLORIDE) [Concomitant]
     Active Substance: PROPRANOLOL HYDROCHLORIDE
     Indication: Product used for unknown indication
     Dosage: AM MEDICATION, 6 PM MEDICATION
     Route: 065
     Dates: start: 20140913
  6. COLCHICINE [Concomitant]
     Active Substance: COLCHICINE
     Indication: Product used for unknown indication
     Dosage: AM MEDICATION, 6 PM MEDICATION, AS NEEDED
     Route: 065
     Dates: start: 20140913
  7. VITAMIN E [Concomitant]
     Active Substance: .ALPHA.-TOCOPHEROL
     Indication: Product used for unknown indication
     Dosage: AM MEDICATION, 6 PM MEDICATION
     Route: 065
     Dates: start: 20140913
  8. FOLIC ACID [Concomitant]
     Active Substance: FOLIC ACID
     Indication: Product used for unknown indication
     Dosage: AM MEDICATION, 6 PM MEDICATION
     Route: 065
     Dates: start: 20140913
  9. VITAMIN D NOS [Concomitant]
     Active Substance: VITAMIN D NOS
     Indication: Product used for unknown indication
     Dosage: AM MEDICATION, 6 PM MEDICATION
     Route: 065
     Dates: start: 20140913
  10. VITAMIN B12 [Concomitant]
     Active Substance: CYANOCOBALAMIN
     Indication: Product used for unknown indication
     Dosage: AM MEDICATION
     Route: 065
     Dates: start: 20140913
  11. CALCIUM [Concomitant]
     Active Substance: CALCIUM
     Indication: Product used for unknown indication
     Dosage: AM MEDICATION, 6 PM MEDICATION
     Route: 065
     Dates: start: 20140913
  12. VITAMINS NOS [Concomitant]
     Active Substance: VITAMINS
     Indication: Product used for unknown indication
     Dosage: UNKNOWN, AM MEDICATION, 6 PM MEDICATION
     Route: 065
     Dates: start: 20140913
  13. COENZYME B12 [Concomitant]
     Indication: Product used for unknown indication
     Dosage: 10 PM
     Route: 065
     Dates: start: 20140913
  14. LORAZEPAM [Concomitant]
     Active Substance: LORAZEPAM
     Indication: Product used for unknown indication
     Dosage: 10 PM, PRN
     Route: 065
     Dates: start: 20140913

REACTIONS (3)
  - Sinusitis [Recovered/Resolved]
  - Bone pain [Unknown]
  - Product use in unapproved indication [Unknown]

NARRATIVE: CASE EVENT DATE: 20230918
